FAERS Safety Report 13666410 (Version 1)
Quarter: 2017Q2

REPORT INFORMATION
  Report Type: Spontaneous
  Country: US (occurrence: US)
  Receive Date: 20170619
  Receipt Date: 20170619
  Transmission Date: 20170830
  Serious: No
  Sender: FDA-Public Use
  Company Number: US-ROCHE-1313696

PATIENT
  Sex: Female

DRUGS (1)
  1. XELODA [Suspect]
     Active Substance: CAPECITABINE
     Indication: PRODUCT USED FOR UNKNOWN INDICATION
     Dosage: 1000 MG IN MORNING AND 500 MG IN EVENING, FOR 14 DAYS EVERY 3 WEEKS
     Route: 048

REACTIONS (3)
  - Skin fissures [Unknown]
  - Neuropathy peripheral [Unknown]
  - Onychoclasis [Unknown]
